FAERS Safety Report 9179083 (Version 3)
Quarter: 2014Q1

REPORT INFORMATION
  Report Type: Spontaneous
  Country: US (occurrence: US)
  Receive Date: 20130321
  Receipt Date: 20140117
  Transmission Date: 20141002
  Serious: Yes (Hospitalization, Disabling, Other)
  Sender: FDA-Public Use
  Company Number: US-009507513-1303USA009745

PATIENT
  Sex: Female
  Weight: 50.5 kg

DRUGS (12)
  1. FOSAMAX [Suspect]
     Indication: OSTEOPENIA
     Dosage: 70 MG, QW
     Route: 048
     Dates: start: 200605, end: 200803
  2. FOSAMAX [Suspect]
     Indication: OSTEOPOROSIS
  3. ACTONEL [Suspect]
     Indication: OSTEOPENIA
     Dosage: 35 MG, QW
     Route: 048
     Dates: start: 200804, end: 201103
  4. ACTONEL [Suspect]
     Indication: OSTEOPOROSIS
  5. CORTICOSTEROIDS (UNSPECIFIED) [Concomitant]
     Dosage: UNK, PRN
     Dates: start: 200112
  6. PERCOCET [Concomitant]
     Indication: RHEUMATOID ARTHRITIS
     Dosage: 325 MG/5 MG, Q6H
     Route: 048
  7. HYDROCHLOROTHIAZIDE [Concomitant]
     Indication: HYPERTENSION
     Dosage: 25 MG, UNK
  8. CLONIDINE [Concomitant]
     Indication: HYPERTENSION
     Dosage: 0.3 MG, UNK
  9. LISINOPRIL [Concomitant]
     Indication: HYPERTENSION
     Dosage: 10 MG, UNK
  10. METFORMIN [Concomitant]
     Indication: DIABETES MELLITUS
     Dosage: 500 MG, UNK
  11. ZOCOR [Concomitant]
     Indication: HYPERLIPIDAEMIA
     Dosage: 40 MG, UNK
  12. DIAMOX [Concomitant]
     Indication: BENIGN INTRACRANIAL HYPERTENSION
     Dosage: 250 MG, UNK

REACTIONS (33)
  - Fascial infection [Unknown]
  - Cellulitis [Unknown]
  - Incisional drainage [Unknown]
  - Bone debridement [Unknown]
  - Fascial infection [Unknown]
  - Periodontal disease [Not Recovered/Not Resolved]
  - Sequestrectomy [Unknown]
  - Ischaemic cerebral infarction [Unknown]
  - Mental status changes [Recovered/Resolved]
  - Acidosis hyperchloraemic [Unknown]
  - Occult blood positive [Unknown]
  - Renal failure acute [Recovering/Resolving]
  - Urinary tract infection [Unknown]
  - Mental status changes [Recovered/Resolved]
  - Metabolic acidosis [Recovered/Resolved]
  - Clostridium difficile colitis [Unknown]
  - Dehydration [Recovered/Resolved]
  - Open reduction of fracture [Unknown]
  - Sepsis [Unknown]
  - Hypotension [Recovered/Resolved]
  - Therapeutic response decreased [Unknown]
  - Osteomyelitis [Not Recovered/Not Resolved]
  - Osteonecrosis of jaw [Not Recovered/Not Resolved]
  - Biopsy bone [Unknown]
  - Depression [Unknown]
  - Anaemia [Unknown]
  - Osteoarthritis [Unknown]
  - Jaw operation [Unknown]
  - Gout [Unknown]
  - Electrolyte imbalance [Unknown]
  - Hypophagia [Unknown]
  - Vomiting [Unknown]
  - Gastrooesophageal reflux disease [Unknown]
